FAERS Safety Report 7267582-6 (Version None)
Quarter: 2011Q1

REPORT INFORMATION
  Report Type: 
  Country: None (occurrence: None)
  Receive Date: 20110201
  Receipt Date: 20100722
  Transmission Date: 20110831
  Serious: No
  Sender: FDA-Public Use
  Company Number: US-ABBOTT-10P-163-0659249-00

PATIENT
  Age: 36 Year
  Sex: Male

DRUGS (9)
  1. BENTYL [Concomitant]
     Indication: CROHN'S DISEASE
  2. BYSTOLIC [Concomitant]
     Indication: HYPERTENSION
  3. LEXAPRO [Concomitant]
     Indication: ANXIETY
  4. PRIMIDONE [Concomitant]
     Indication: ESSENTIAL TREMOR
  5. BUSPAR [Concomitant]
     Indication: ANXIETY
  6. SPECIAL COMPOUND [Concomitant]
     Indication: ANAL FISSURE
  7. HUMIRA [Suspect]
     Indication: CROHN'S DISEASE
     Dates: start: 20100301
  8. PENTASA [Concomitant]
     Indication: CROHN'S DISEASE
  9. PROBOTICS SUPPLEMENT [Concomitant]
     Indication: PRODUCT USED FOR UNKNOWN INDICATION

REACTIONS (4)
  - HEADACHE [None]
  - INFLUENZA LIKE ILLNESS [None]
  - DIARRHOEA [None]
  - NAUSEA [None]
